FAERS Safety Report 6706730-0 (Version None)
Quarter: 2010Q2

REPORT INFORMATION
  Report Type: 
  Country: None (occurrence: None)
  Receive Date: 20100428
  Receipt Date: 20100413
  Transmission Date: 20101027
  Serious: Yes (Hospitalization)
  Sender: FDA-Public Use
  Company Number: A-US2010-35396

PATIENT
  Age: 86 Year
  Sex: Female

DRUGS (24)
  1. TRACLEER [Suspect]
     Indication: PULMONARY ARTERIAL HYPERTENSION
     Dosage: ORAL
     Route: 048
     Dates: start: 20100218
  2. DIOVAN [Concomitant]
  3. ALDACTONE [Concomitant]
  4. LASIX [Concomitant]
  5. ALLOPURINOL [Concomitant]
  6. NORVASC [Concomitant]
  7. FERROUS SULFATE TAB [Concomitant]
  8. HYDRALAZINE (HYDRALAZINE HYDROCHLORIDE) [Concomitant]
  9. CATAPRES [Concomitant]
  10. PLAQUENIL [Concomitant]
  11. VIAGRA [Concomitant]
  12. ASPIRIN [Concomitant]
  13. MIRALAX [Concomitant]
  14. PREDNISONE TAB [Concomitant]
  15. VASOTEC [Concomitant]
  16. ATROPINE SULFATE [Concomitant]
  17. PROTONIX [Concomitant]
  18. XOPENEX [Concomitant]
  19. ATROVENT [Concomitant]
  20. SINGULAIR [Concomitant]
  21. THEO-DUR [Concomitant]
  22. SYNTHROID [Concomitant]
  23. THIAMINE (THIAMINE) [Concomitant]
  24. PYRIDOXINE (PYRIDOXINE HYDROCHLORIDE) [Concomitant]

REACTIONS (10)
  - ALANINE AMINOTRANSFERASE INCREASED [None]
  - ASPARTATE AMINOTRANSFERASE INCREASED [None]
  - ATRIOVENTRICULAR BLOCK SECOND DEGREE [None]
  - BRONCHITIS [None]
  - CARDIAC FAILURE CONGESTIVE [None]
  - CHRONIC OBSTRUCTIVE PULMONARY DISEASE [None]
  - CONDITION AGGRAVATED [None]
  - CONSTIPATION [None]
  - PNEUMONIA [None]
  - RENAL FAILURE ACUTE [None]
